FAERS Safety Report 11897316 (Version 1)
Quarter: 2016Q1

REPORT INFORMATION
  Report Type: Report from Study
  Country: BR (occurrence: BR)
  Receive Date: 20160108
  Receipt Date: 20160108
  Transmission Date: 20160526
  Serious: Yes (Other)
  Sender: FDA-Public Use
  Company Number: BR-ROCHE-1690278

PATIENT
  Sex: Female
  Weight: 72.8 kg

DRUGS (9)
  1. NPH (INSULIN) [Concomitant]
     Dosage: 28 IU AT NIGHT, 14 IU AFTER LUNCH AND 8 IU AT NIGHT.
     Route: 065
  2. REGULAR INSULIN [Concomitant]
     Active Substance: INSULIN NOS
     Dosage: AFTER DINNER
     Route: 065
  3. AMLODIPINE [Concomitant]
     Active Substance: AMLODIPINE BESYLATE
     Dosage: 1 TABLET IN THE MORNING AND 1 TABLET AT NIGHT
     Route: 065
  4. RAMIPRIL. [Concomitant]
     Active Substance: RAMIPRIL
     Dosage: 1 TABLET AT NIGHT
     Route: 065
  5. CALCIUM PHOSPHATE [Concomitant]
     Active Substance: CALCIUM PHOSPHATE
  6. AMIDARONE [Concomitant]
     Active Substance: AMIODARONE
     Dosage: 1 TABLET AT NIGHT
     Route: 065
  7. ACTEMRA [Suspect]
     Active Substance: TOCILIZUMAB
     Indication: RHEUMATOID ARTHRITIS
     Route: 042
     Dates: start: 20150629
  8. LOSARTAN. [Concomitant]
     Active Substance: LOSARTAN
     Dosage: 2 TABLEST IN MORNING AND 2 TABLETS IN NIGHT.
     Route: 065
  9. MABTHERA [Suspect]
     Active Substance: RITUXIMAB
     Indication: PRODUCT USED FOR UNKNOWN INDICATION
     Route: 065

REACTIONS (13)
  - Hypertension [Unknown]
  - Sensory disturbance [Unknown]
  - Palpitations [Unknown]
  - Diabetes mellitus [Unknown]
  - Dyspnoea [Unknown]
  - Obstructive airways disorder [Unknown]
  - Insomnia [Unknown]
  - Weight decreased [Unknown]
  - Pruritus [Unknown]
  - Skin injury [Unknown]
  - Pneumonia [Unknown]
  - Blood pressure fluctuation [Unknown]
  - Erythema [Unknown]
